FAERS Safety Report 4342136-X (Version None)
Quarter: 2004Q1

REPORT INFORMATION
  Report Type: 
  Country: None (occurrence: None)
  Receive Date: 20040329
  Receipt Date: 20040203
  Transmission Date: 20041129
  Serious: No
  Sender: FDA-Public Use
  Company Number: 04P-163-0249362-00

PATIENT
  Age: 29 Year
  Sex: Female

DRUGS (3)
  1. HUMIRA [Suspect]
     Indication: RHEUMATOID ARTHRITIS
     Dosage: 40 MG 1 IN 1WK SUBCUTANEOUS
     Route: 058
     Dates: start: 20030101, end: 20030701
  2. HUMIRA [Suspect]
     Indication: RHEUMATOID ARTHRITIS
     Dosage: 40 MG 1 IN 1WK SUBCUTANEOUS
     Route: 058
     Dates: start: 20040101
  3. ROFECOXIB [Concomitant]

REACTIONS (1)
  - INJECTION SITE STINGING [None]
